FAERS Safety Report 12222192 (Version 1)
Quarter: 2016Q1

REPORT INFORMATION
  Report Type: Spontaneous
  Country: US (occurrence: US)
  Receive Date: 20160330
  Receipt Date: 20160330
  Transmission Date: 20160526
  Serious: No
  Sender: FDA-Public Use
  Company Number: US-MYLANLABS-2015M1028228

PATIENT
  Age: 80 Year
  Sex: Male

DRUGS (2)
  1. FENTANYL TRANSDERMAL SYSTEM [Suspect]
     Active Substance: FENTANYL
     Indication: INTERVERTEBRAL DISC DEGENERATION
     Dosage: 25 ?G, QH, CHANGED Q72H
     Route: 062
     Dates: end: 20150814
  2. FENTANYL TRANSDERMAL SYSTEM [Suspect]
     Active Substance: FENTANYL
     Indication: OFF LABEL USE

REACTIONS (5)
  - Application site erythema [Recovering/Resolving]
  - Hyperhidrosis [Not Recovered/Not Resolved]
  - Application site pain [Recovering/Resolving]
  - Drug withdrawal syndrome [Not Recovered/Not Resolved]
  - Feeling jittery [Not Recovered/Not Resolved]

NARRATIVE: CASE EVENT DATE: 201508
